FAERS Safety Report 7426141-2 (Version None)
Quarter: 2011Q2

REPORT INFORMATION
  Report Type: 
  Country: None (occurrence: None)
  Receive Date: 20110420
  Receipt Date: 20110411
  Transmission Date: 20111010
  Serious: Yes (Hospitalization)
  Sender: FDA-Public Use
  Company Number: PHFR2010IE06022

PATIENT
  Sex: Female

DRUGS (8)
  1. DULOXETINE [Concomitant]
     Dosage: 60MG
     Route: 048
  2. VITAMIN E [Concomitant]
     Dosage: 400IU
     Route: 048
  3. AMPICILLIN SODIUM/SULBACTAM SODIUM [Concomitant]
     Dosage: 625 MG, TID
     Route: 048
  4. CLOZARIL [Suspect]
     Indication: SCHIZOPHRENIA
     Dosage: 375MG
     Route: 048
     Dates: start: 20091126
  5. VALPROATE SODIUM [Concomitant]
     Dosage: 500MG
     Route: 048
  6. SERETIDE ^ALLEN + HANBURYS LTD^ [Concomitant]
  7. LANSOPRAZOLE [Concomitant]
     Dosage: 30MG
     Route: 048
  8. COMBIVENT [Concomitant]
     Dosage: 2.5MG

REACTIONS (7)
  - RESPIRATORY FAILURE [None]
  - CHRONIC OBSTRUCTIVE PULMONARY DISEASE [None]
  - EOSINOPHIL COUNT INCREASED [None]
  - OXYGEN SATURATION DECREASED [None]
  - INFLUENZA LIKE ILLNESS [None]
  - WHITE BLOOD CELL COUNT INCREASED [None]
  - HYPERPYREXIA [None]
